FAERS Safety Report 21612931 (Version 2)
Quarter: 2022Q4

REPORT INFORMATION
  Report Type: Report from Study
  Country: MX (occurrence: MX)
  Receive Date: 20221118
  Receipt Date: 20221125
  Transmission Date: 20230113
  Serious: Yes (Death, Other)
  Sender: FDA-Public Use
  Company Number: MX-002147023-NVSC2022MX259431

PATIENT
  Age: 35 Year
  Sex: Male
  Weight: 117 kg

DRUGS (4)
  1. ENTRESTO [Suspect]
     Active Substance: SACUBITRIL\VALSARTAN
     Indication: Cardiac disorder
     Dosage: 1 DOSAGE FORM, Q24H
     Route: 048
     Dates: start: 202202, end: 202206
  2. ENTRESTO [Suspect]
     Active Substance: SACUBITRIL\VALSARTAN
     Indication: Cardiac failure
     Dosage: 1 DOSAGE FORM, Q12H (AFTER SOME STUDIES 2 MONTHS LATER)
     Route: 048
     Dates: start: 202206
  3. DIGOXIN [Concomitant]
     Active Substance: DIGOXIN
     Indication: Cardiac failure
     Dosage: 1 DOSAGE FORM, Q24H
     Route: 048
     Dates: start: 202202
  4. AMIODARONE [Concomitant]
     Active Substance: AMIODARONE
     Indication: Cardiac failure
     Dosage: 1 DOSAGE FORM, Q24H
     Route: 048
     Dates: start: 202202

REACTIONS (2)
  - Cardiac arrest [Fatal]
  - Off label use [Recovered/Resolved]

NARRATIVE: CASE EVENT DATE: 20220201
